FAERS Safety Report 8199249-4 (Version None)
Quarter: 2012Q1

REPORT INFORMATION
  Report Type: 
  Country: None (occurrence: None)
  Receive Date: 20120309
  Receipt Date: 20120305
  Transmission Date: 20120608
  Serious: Yes (Other)
  Sender: FDA-Public Use
  Company Number: BR-ELI_LILLY_AND_COMPANY-BR201203001295

PATIENT
  Sex: Female
  Weight: 60 kg

DRUGS (4)
  1. IRBESARTAN [Concomitant]
     Indication: HYPERTENSION
     Dosage: 30 MG, QD
     Route: 065
  2. RASILEZ [Concomitant]
     Indication: HYPERTENSION
     Dosage: 300 MG, QD
     Route: 065
  3. SIMVASTATIN [Concomitant]
     Indication: HYPERTENSION
     Dosage: 20 MG, QD
     Route: 065
  4. HUMALOG MIX 75/25 [Suspect]
     Indication: TYPE 2 DIABETES MELLITUS
     Dosage: UNK, UNKNOWN
     Route: 058

REACTIONS (1)
  - BLOOD GLUCOSE FLUCTUATION [None]
